FAERS Safety Report 17036316 (Version 1)
Quarter: 2019Q4

REPORT INFORMATION
  Report Type: Spontaneous
  Country: AU (occurrence: AU)
  Receive Date: 20191115
  Receipt Date: 20191115
  Transmission Date: 20200122
  Serious: Yes (Disabling, Other)
  Sender: FDA-Public Use
  Company Number: NVSC2019AU032826

PATIENT
  Age: 93 Year
  Sex: Male

DRUGS (5)
  1. JADENU [Suspect]
     Active Substance: DEFERASIROX
     Dosage: 90 MG
     Route: 048
     Dates: start: 20191009, end: 20191030
  2. JADENU [Suspect]
     Active Substance: DEFERASIROX
     Indication: MYELODYSPLASTIC SYNDROME
     Dosage: 360 MG, QD
     Route: 048
     Dates: start: 20190529, end: 20190627
  3. JADENU [Suspect]
     Active Substance: DEFERASIROX
     Dosage: 90 MG, QD
     Route: 048
     Dates: start: 20190828, end: 20190924
  4. FURSEMIDE [Concomitant]
     Active Substance: FUROSEMIDE
     Indication: PRODUCT USED FOR UNKNOWN INDICATION
     Dosage: 20 MG, QD
     Route: 048
  5. ARANESP [Concomitant]
     Active Substance: DARBEPOETIN ALFA
     Indication: PRODUCT USED FOR UNKNOWN INDICATION
     Dosage: 100 UG, QW
     Route: 058

REACTIONS (4)
  - Liver function test increased [Recovering/Resolving]
  - Nausea [Recovered/Resolved]
  - Pancreatic enzymes increased [Recovering/Resolving]
  - Decreased appetite [Recovering/Resolving]

NARRATIVE: CASE EVENT DATE: 20190627
